FAERS Safety Report 8580239-4 (Version None)
Quarter: 2012Q3

REPORT INFORMATION
  Report Type: 
  Country: None (occurrence: None)
  Receive Date: 20120808
  Receipt Date: 20120803
  Transmission Date: 20120928
  Serious: Yes (Other)
  Sender: FDA-Public Use
  Company Number: US-PFIZER INC-2012189471

PATIENT
  Age: 65 Year
  Sex: Female
  Weight: 61.224 kg

DRUGS (4)
  1. AUGMENTIN '500' [Suspect]
     Indication: CELLULITIS
     Dosage: 500 MG, 2X/DAY
     Dates: start: 20120701, end: 20120701
  2. AUGMENTIN '500' [Suspect]
     Indication: LACERATION
  3. COUMADIN [Concomitant]
     Indication: PULMONARY HYPERTENSION
     Dosage: 5 MG, 1X/DAY
  4. REVATIO [Suspect]
     Indication: PULMONARY HYPERTENSION
     Dosage: 20 MG, 3X/DAY
     Dates: start: 20110501

REACTIONS (3)
  - LACERATION [None]
  - CELLULITIS [None]
  - GASTROINTESTINAL DISORDER [None]
